FAERS Safety Report 10178495 (Version 1)
Quarter: 2014Q2

REPORT INFORMATION
  Report Type: Spontaneous
  Country: US (occurrence: US)
  Receive Date: 20140519
  Receipt Date: 20140519
  Transmission Date: 20141212
  Serious: No
  Sender: FDA-Public Use
  Company Number: US-JNJFOC-20140417985

PATIENT
  Age: 51 Year
  Sex: Female
  Weight: 77.11 kg

DRUGS (4)
  1. INVEGA [Suspect]
     Indication: SCHIZOPHRENIA
     Route: 048
     Dates: start: 2013, end: 2014
  2. RISPERDAL [Suspect]
     Indication: SCHIZOPHRENIA
     Route: 048
     Dates: start: 2014, end: 2014
  3. RISPERDAL [Suspect]
     Indication: SCHIZOPHRENIA
     Route: 048
     Dates: start: 2014
  4. CLONOPIN [Concomitant]
     Indication: ANXIETY
     Route: 048

REACTIONS (2)
  - Parkinsonism [Not Recovered/Not Resolved]
  - Lethargy [Recovered/Resolved]
